FAERS Safety Report 24661270 (Version 1)
Quarter: 2024Q4

REPORT INFORMATION
  Report Type: Spontaneous
  Country: US (occurrence: US)
  Receive Date: 20241125
  Receipt Date: 20241125
  Transmission Date: 20250115
  Serious: No
  Sender: AVADEL CNS PHARMACEUTICALS, LLC
  Company Number: US-AVADEL CNS PHARMACEUTICALS, LLC-2024AVA01549

PATIENT
  Age: 25 Year
  Sex: Female
  Weight: 95.238 kg

DRUGS (16)
  1. LUMRYZ [Suspect]
     Active Substance: SODIUM OXYBATE
     Indication: Narcolepsy
     Dosage: 9 G, ONCE NIGHTLY
     Route: 048
     Dates: start: 20240812, end: 202409
  2. LUMRYZ [Suspect]
     Active Substance: SODIUM OXYBATE
     Indication: Cataplexy
  3. VALTREX [Concomitant]
     Active Substance: VALACYCLOVIR HYDROCHLORIDE
     Dosage: 500 G, ONCE DAILY
  4. OMEPRAZOLE [Concomitant]
     Active Substance: OMEPRAZOLE
     Dosage: 40 MG, TWICE DAILY
  5. GABAPENTIN [Concomitant]
     Active Substance: GABAPENTIN
     Dosage: 3 MG, TWICE DAILY
  6. TRILEPTAL [Concomitant]
     Active Substance: OXCARBAZEPINE
     Dosage: 30 MG, TWICE DAILY
  7. GEODON [Concomitant]
     Active Substance: ZIPRASIDONE HYDROCHLORIDE\ZIPRASIDONE MESYLATE
     Dosage: 60 MG, TWICE DAILY
  8. PRAZOSIN [Concomitant]
     Active Substance: PRAZOSIN
     Dosage: 4 MG, ONCE DAILY
  9. VYVANSE [Concomitant]
     Active Substance: LISDEXAMFETAMINE DIMESYLATE
     Dosage: 4 MG, ONCE DAILY
  10. MELOXICAM [Concomitant]
     Active Substance: MELOXICAM
     Indication: Plantar fasciitis
     Dosage: 15 MG, ONCE DAILY
     Dates: start: 202408
  11. MELOXICAM [Concomitant]
     Active Substance: MELOXICAM
     Indication: Limb discomfort
  12. HYDROXYZINE [Concomitant]
     Active Substance: HYDROXYZINE HYDROCHLORIDE
     Dosage: 50 MG, AS NEEDED
  13. ZIPRASIDONE [Concomitant]
     Active Substance: ZIPRASIDONE
  14. FLONASE [Concomitant]
     Active Substance: FLUTICASONE PROPIONATE
  15. OXCARBAZEPINE [Concomitant]
     Active Substance: OXCARBAZEPINE
  16. ALBUTEROL [Concomitant]
     Active Substance: ALBUTEROL

REACTIONS (5)
  - Performance status decreased [Not Recovered/Not Resolved]
  - Terminal insomnia [Not Recovered/Not Resolved]
  - Fatigue [Not Recovered/Not Resolved]
  - Insomnia [Recovered/Resolved]
  - Somnolence [Not Recovered/Not Resolved]

NARRATIVE: CASE EVENT DATE: 20240801
